FAERS Safety Report 5757145-3 (Version None)
Quarter: 2008Q2

REPORT INFORMATION
  Report Type: 
  Country: None (occurrence: None)
  Receive Date: 20080603
  Receipt Date: 20080523
  Transmission Date: 20081010
  Serious: Yes (Hospitalization)
  Sender: FDA-Public Use
  Company Number: FR-JNJFOC-20080504861

PATIENT
  Age: 47 Year
  Sex: Male

DRUGS (8)
  1. PREZISTA [Suspect]
     Indication: HIV INFECTION
     Route: 048
  2. NORVIR [Suspect]
     Indication: HIV INFECTION
     Route: 048
  3. TRUVADA [Suspect]
     Indication: HIV INFECTION
  4. MK-0518 [Suspect]
     Indication: HIV INFECTION
  5. MOPRAL [Concomitant]
  6. AMITRIPTYLINE HCL [Concomitant]
  7. SUBUTEX [Concomitant]
  8. DOLIPRANE [Concomitant]

REACTIONS (1)
  - OPTIC NEURITIS [None]
